FAERS Safety Report 4755866-2 (Version None)
Quarter: 2005Q3

REPORT INFORMATION
  Report Type: 
  Country: None (occurrence: None)
  Receive Date: 20050830
  Receipt Date: 20050623
  Transmission Date: 20060218
  Serious: No
  Sender: FDA-Public Use
  Company Number: US-BRISTOL-MYERS SQUIBB COMPANY-13013313

PATIENT
  Age: 63 Year
  Sex: Male

DRUGS (2)
  1. ERBITUX [Suspect]
     Indication: TONSIL CANCER
  2. BENADRYL [Concomitant]
     Indication: PREMEDICATION
     Route: 042

REACTIONS (2)
  - EXFOLIATIVE RASH [None]
  - FUNGAL RASH [None]
